FAERS Safety Report 9628474 (Version 1)
Quarter: 2013Q4

REPORT INFORMATION
  Report Type: Spontaneous
  Country: US (occurrence: US)
  Receive Date: 20131017
  Receipt Date: 20131017
  Transmission Date: 20140711
  Serious: No
  Sender: FDA-Public Use
  Company Number: US-PFIZER INC-2013295562

PATIENT
  Sex: 0

DRUGS (1)
  1. CHANTIX [Suspect]
     Dosage: UNK
     Dates: start: 20130912, end: 20130927

REACTIONS (5)
  - Nightmare [Unknown]
  - Night sweats [Unknown]
  - Balance disorder [Unknown]
  - Headache [Unknown]
  - Anxiety [Unknown]
